FAERS Safety Report 12450761 (Version 1)
Quarter: 2016Q2

REPORT INFORMATION
  Report Type: Spontaneous
  Country: US (occurrence: US)
  Receive Date: 20160609
  Receipt Date: 20160609
  Transmission Date: 20160815
  Serious: No
  Sender: FDA-Public Use
  Company Number: US-PERRIGO-15US004700

PATIENT
  Sex: Female

DRUGS (3)
  1. PERMETHRIN. [Suspect]
     Active Substance: PERMETHRIN
     Indication: ACARODERMATITIS
     Dosage: 1 APPLICATION, SINGLE
     Route: 061
     Dates: start: 20150421, end: 20150421
  2. PERMETHRIN. [Suspect]
     Active Substance: PERMETHRIN
     Dosage: 1 APPLICATION, SINGLE
     Route: 061
     Dates: start: 20150424, end: 20150424
  3. PERMETHRIN. [Suspect]
     Active Substance: PERMETHRIN
     Dosage: 1 APPLICATION, SINGLE
     Route: 061
     Dates: start: 20150502, end: 20150502

REACTIONS (3)
  - Extra dose administered [Unknown]
  - Exposure during pregnancy [Unknown]
  - Inappropriate schedule of drug administration [Unknown]

NARRATIVE: CASE EVENT DATE: 20150421
